FAERS Safety Report 4944490-4 (Version None)
Quarter: 2006Q1

REPORT INFORMATION
  Report Type: 
  Country: None (occurrence: None)
  Receive Date: 20060315
  Receipt Date: 20060307
  Transmission Date: 20060701
  Serious: Yes (Other)
  Sender: FDA-Public Use
  Company Number: JP-AVENTIS-200612349GDDC

PATIENT
  Age: 52 Year
  Sex: Male

DRUGS (1)
  1. KENACORT-A OPHTHALMIC OINTMENT [Suspect]
     Indication: MACULAR OEDEMA
     Route: 051

REACTIONS (3)
  - ENDOPHTHALMITIS [None]
  - EYE INFECTION BACTERIAL [None]
  - PSEUDOMONAS INFECTION [None]
